FAERS Safety Report 26215326 (Version 1)
Quarter: 2025Q4

REPORT INFORMATION
  Report Type: Spontaneous
  Country: EU (occurrence: EU)
  Receive Date: 20251230
  Receipt Date: 20251230
  Transmission Date: 20260118
  Serious: Yes (Other)
  Sender: NOVARTIS
  Company Number: None

PATIENT
  Age: 53 Year
  Sex: Male

DRUGS (3)
  1. COSENTYX [Suspect]
     Active Substance: SECUKINUMAB
     Indication: Hidradenitis
     Dosage: 300 MG, QMO
     Route: 058
     Dates: start: 20241128, end: 20250804
  2. TOUJEO [Concomitant]
     Active Substance: INSULIN GLARGINE
     Indication: Diabetes mellitus
     Dosage: 25 IU, QD, TOUJEO 300 UNITS/ML DOUBLESTAR INJECTABLE SOLUTION IN PRE-FILLED PEN 3 PRE-FILLED PENS OF
     Route: 058
     Dates: start: 202404
  3. NOVORAPID [Concomitant]
     Active Substance: INSULIN ASPART
     Indication: Diabetes mellitus
     Dosage: 70 IU, QD, 100 U/ML INJECTABLE SOLUTION IN A PRE-FILLED PEN, 5 PRE-FILLED PENS OF 3 ML
     Route: 058
     Dates: start: 2006

REACTIONS (1)
  - Vasculitis [Recovering/Resolving]

NARRATIVE: CASE EVENT DATE: 20250130
